FAERS Safety Report 19217683 (Version 2)
Quarter: 2021Q2

REPORT INFORMATION
  Report Type: Report from Study
  Country: US (occurrence: US)
  Receive Date: 20210505
  Receipt Date: 20210510
  Transmission Date: 20210717
  Serious: No
  Sender: FDA-Public Use
  Company Number: US-B.I. PHARMACEUTICALS,INC./RIDGEFIELD-2021-BI-100758

PATIENT
  Age: 81 Year
  Sex: Female

DRUGS (1)
  1. OFEV [Suspect]
     Active Substance: NINTEDANIB
     Indication: INTERSTITIAL LUNG DISEASE
     Dosage: 100 MG BID
     Route: 048
     Dates: start: 20210227

REACTIONS (6)
  - Fall [Not Recovered/Not Resolved]
  - Bedridden [Unknown]
  - Dyspnoea exertional [Unknown]
  - Syncope [Not Recovered/Not Resolved]
  - Dizziness [Unknown]
  - Dysstasia [Not Recovered/Not Resolved]
